FAERS Safety Report 8478195-2 (Version None)
Quarter: 2012Q2

REPORT INFORMATION
  Report Type: 
  Country: None (occurrence: None)
  Receive Date: 20120629
  Receipt Date: 20120619
  Transmission Date: 20120825
  Serious: No
  Sender: FDA-Public Use
  Company Number: US-ELI_LILLY_AND_COMPANY-US201205004515

PATIENT
  Sex: Female
  Weight: 69.388 kg

DRUGS (1)
  1. FORTEO [Suspect]
     Indication: OSTEOPOROSIS
     Dosage: 20 UG, QD
     Route: 065
     Dates: start: 20120503

REACTIONS (6)
  - HEART RATE INCREASED [None]
  - DYSPEPSIA [None]
  - MUSCLE SPASMS [None]
  - RENAL PAIN [None]
  - MENTAL IMPAIRMENT [None]
  - HEADACHE [None]
